FAERS Safety Report 10145665 (Version 1)
Quarter: 2014Q2

REPORT INFORMATION
  Report Type: Spontaneous
  Country: US (occurrence: US)
  Receive Date: 20140501
  Receipt Date: 20140501
  Transmission Date: 20141212
  Serious: No
  Sender: FDA-Public Use
  Company Number: US-ABBVIE-14P-163-1192812-00

PATIENT
  Age: 83 Year
  Sex: Female
  Weight: 57.66 kg

DRUGS (1)
  1. CREON [Suspect]
     Indication: PANCREATIC INSUFFICIENCY
     Dosage: 3 CAPSULES TID
     Route: 048
     Dates: start: 20140114

REACTIONS (1)
  - Hepatic enzyme increased [Not Recovered/Not Resolved]
